FAERS Safety Report 6782141-7 (Version None)
Quarter: 2010Q2

REPORT INFORMATION
  Report Type: 
  Country: None (occurrence: None)
  Receive Date: 20100621
  Receipt Date: 20100610
  Transmission Date: 20101027
  Serious: Yes (Other)
  Sender: FDA-Public Use
  Company Number: GB-MERCK-1006USA01876

PATIENT
  Age: 53 Year
  Sex: Female

DRUGS (3)
  1. DECADRON [Suspect]
     Route: 048
  2. ESTRADIOL [Suspect]
     Route: 065
  3. BENDROFLUMETHIAZIDE [Concomitant]
     Route: 065

REACTIONS (1)
  - MYOCLONUS [None]
